FAERS Safety Report 25926277 (Version 2)
Quarter: 2025Q4

REPORT INFORMATION
  Report Type: Report from Study
  Country: CO (occurrence: CO)
  Receive Date: 20251015
  Receipt Date: 20251027
  Transmission Date: 20260117
  Serious: Yes (Hospitalization, Disabling, Other)
  Sender: SANOFI AVENTIS
  Company Number: CO-SA-2025SA178483

PATIENT
  Age: 63 Year
  Sex: Male

DRUGS (4)
  1. INSULIN GLULISINE [Suspect]
     Active Substance: INSULIN GLULISINE
     Indication: Type 2 diabetes mellitus
     Dosage: 6 U, Q8H
     Route: 058
     Dates: start: 20250123
  2. TOUJEO [Concomitant]
     Active Substance: INSULIN GLARGINE
     Indication: Type 2 diabetes mellitus
     Dosage: 16 U, QD (DAILY)
     Route: 058
     Dates: start: 20250123
  3. NYDRAZID [Concomitant]
     Active Substance: ISONIAZID
     Dosage: 75 MG, QD
  4. RIFADIN [Concomitant]
     Active Substance: RIFAMPIN
     Dosage: 150 MG, QD

REACTIONS (16)
  - Tuberculosis [Recovering/Resolving]
  - Pain [Recovering/Resolving]
  - Headache [Recovering/Resolving]
  - Pyrexia [Recovering/Resolving]
  - Hand fracture [Recovered/Resolved with Sequelae]
  - Fall [Recovered/Resolved]
  - Diabetes mellitus inadequate control [Not Recovered/Not Resolved]
  - Diabetes mellitus [Unknown]
  - Blood glucose increased [Recovered/Resolved]
  - Altered state of consciousness [Not Recovered/Not Resolved]
  - Loss of personal independence in daily activities [Unknown]
  - Joint range of motion decreased [Not Recovered/Not Resolved]
  - Pain in extremity [Not Recovered/Not Resolved]
  - Vision blurred [Recovering/Resolving]
  - Brain fog [Recovering/Resolving]
  - Arthralgia [Unknown]

NARRATIVE: CASE EVENT DATE: 20250101
